FAERS Safety Report 5078135-2 (Version None)
Quarter: 2006Q3

REPORT INFORMATION
  Report Type: 
  Country: None (occurrence: None)
  Receive Date: 20060811
  Receipt Date: 20060306
  Transmission Date: 20061208
  Serious: Yes (Death, Other)
  Sender: FDA-Public Use
  Company Number: CA-ABBOTT-06P-028-0327263-00

PATIENT
  Sex: Male
  Weight: 120 kg

DRUGS (2)
  1. MERIDIA [Suspect]
     Indication: DRUG USE FOR UNKNOWN INDICATION
     Route: 048
     Dates: start: 20060228, end: 20060303
  2. FLUOXETINE HYDROCHLORIDE [Concomitant]
     Indication: DRUG USE FOR UNKNOWN INDICATION
     Route: 048

REACTIONS (6)
  - ARRHYTHMIA [None]
  - ARTERIOSCLEROSIS CORONARY ARTERY [None]
  - DILATATION VENTRICULAR [None]
  - HEAD INJURY [None]
  - LOSS OF CONSCIOUSNESS [None]
  - VENTRICULAR HYPERTROPHY [None]
